FAERS Safety Report 6299131-3 (Version None)
Quarter: 2009Q3

REPORT INFORMATION
  Report Type: 
  Country: None (occurrence: None)
  Receive Date: 20090803
  Receipt Date: 20090721
  Transmission Date: 20100115
  Serious: Yes (Hospitalization)
  Sender: FDA-Public Use
  Company Number: 2009SP001884

PATIENT
  Age: 62 Year
  Sex: Female

DRUGS (16)
  1. XOPENEX [Suspect]
     Indication: ASTHMA
     Dosage: INHALATION
     Route: 055
  2. COMBIVENT [Suspect]
     Indication: ASTHMA
     Dosage: PRN; INHALATION
     Route: 055
     Dates: start: 20030101, end: 20090601
  3. MINERAL OIL EMULSION [Concomitant]
  4. METAMUCIL [Concomitant]
  5. ZANTAC [Concomitant]
  6. HYOSCYAMINE [Concomitant]
  7. ESTRADIOL [Concomitant]
  8. CALCIUM W/VITAMIN D [Concomitant]
  9. SINGULAIR [Concomitant]
  10. ALLEGRA [Concomitant]
  11. SYMBICORT [Concomitant]
  12. AFRIN [Concomitant]
  13. DHEA [Concomitant]
  14. MILK OF MAGNESIA TAB [Concomitant]
  15. XANAX [Concomitant]
  16. LACTAID [Concomitant]

REACTIONS (5)
  - ABDOMINAL DISCOMFORT [None]
  - ASTHENIA [None]
  - FEELING ABNORMAL [None]
  - GASTROINTESTINAL FUNGAL INFECTION [None]
  - NERVOUSNESS [None]
